FAERS Safety Report 4646775-8 (Version None)
Quarter: 2005Q2

REPORT INFORMATION
  Report Type: 
  Country: None (occurrence: None)
  Receive Date: 20050426
  Receipt Date: 20050426
  Transmission Date: 20051028
  Serious: No
  Sender: FDA-Public Use
  Company Number: None

PATIENT
  Age: 70 Year
  Sex: Male
  Weight: 86.1834 kg

DRUGS (1)
  1. FLOMAX [Suspect]
     Indication: BENIGN PROSTATIC HYPERPLASIA
     Dosage: DAILY  ORAL
     Route: 048
     Dates: start: 20040101, end: 20050425

REACTIONS (6)
  - INFLAMMATION [None]
  - IRIS DISORDER [None]
  - IRIS INJURY [None]
  - POSTERIOR CAPSULE RUPTURE [None]
  - PROCEDURAL COMPLICATION [None]
  - VITREOUS LOSS [None]
